FAERS Safety Report 25750360 (Version 1)
Quarter: 2025Q3

REPORT INFORMATION
  Report Type: Spontaneous
  Country: US (occurrence: None)
  Receive Date: 20250830
  Receipt Date: 20250830
  Transmission Date: 20251021
  Serious: Yes (Death)
  Sender: FDA-CTU
  Company Number: None

PATIENT
  Age: 63 Year
  Sex: Male
  Weight: 94.5 kg

DRUGS (2)
  1. PERIGUARD [Suspect]
     Active Substance: PETROLATUM
     Indication: Pain
     Dates: start: 20250420, end: 20250611
  2. OXYGEN [Suspect]
     Active Substance: OXYGEN

REACTIONS (2)
  - Sepsis [None]
  - Immune system disorder [None]

NARRATIVE: CASE EVENT DATE: 20250611
